FAERS Safety Report 12562018 (Version 4)
Quarter: 2017Q3

REPORT INFORMATION
  Report Type: Spontaneous
  Country: NL (occurrence: NL)
  Receive Date: 20160715
  Receipt Date: 20170914
  Transmission Date: 20171127
  Serious: Yes (Other)
  Sender: FDA-Public Use
  Company Number: NL-GILEAD-2016-0222159

PATIENT
  Age: 67 Year
  Sex: Male
  Weight: 82 kg

DRUGS (10)
  1. ISOSORBIDE MONONITRATE. [Concomitant]
     Active Substance: ISOSORBIDE MONONITRATE
     Indication: LEFT VENTRICULAR HYPERTROPHY
     Dosage: 75 MG, QD
     Route: 048
     Dates: start: 2008
  2. LOSARTAN. [Concomitant]
     Active Substance: LOSARTAN
     Indication: CARDIOVASCULAR DISORDER
     Dosage: 50 MG, QD
     Route: 048
     Dates: start: 2008
  3. MESALAZINE [Concomitant]
     Active Substance: MESALAMINE
     Indication: COLITIS ULCERATIVE
     Dosage: 4 G, QD
     Route: 048
     Dates: start: 2007
  4. ACENOCOUMAROL [Concomitant]
     Active Substance: ACENOCOUMAROL
     Indication: ATRIAL FIBRILLATION
     Dosage: 1 MG, QD
     Route: 048
     Dates: start: 2004
  5. FLUTICASON [Concomitant]
     Active Substance: FLUTICASONE
     Indication: NASAL POLYPS
     Dosage: 55 UG, QD
     Route: 045
     Dates: start: 2016
  6. NIFEDIPINE. [Concomitant]
     Active Substance: NIFEDIPINE
     Indication: CARDIOVASCULAR DISORDER
     Dosage: 60 MG, QD
     Route: 048
     Dates: start: 2008
  7. HARVONI [Suspect]
     Active Substance: LEDIPASVIR\SOFOSBUVIR
     Indication: CHRONIC HEPATITIS C
     Dosage: 1 DF, QD
     Route: 065
     Dates: start: 20160510, end: 20160707
  8. ASCAL                              /00002702/ [Concomitant]
     Active Substance: ASPIRIN CALCIUM
     Indication: CORONARY ARTERY DISEASE
     Dosage: 100 MG, UNK
     Route: 048
     Dates: start: 2001, end: 20160608
  9. SOTALOL. [Concomitant]
     Active Substance: SOTALOL
     Indication: ATRIAL FIBRILLATION
     Dosage: 120 MG, QD
     Route: 048
     Dates: start: 2004
  10. BUDESONIDE. [Concomitant]
     Active Substance: BUDESONIDE
     Dosage: 9 MG, QD

REACTIONS (1)
  - Thrombocytopenia [Recovered/Resolved]

NARRATIVE: CASE EVENT DATE: 20160606
